FAERS Safety Report 4331065-3 (Version None)
Quarter: 2004Q2

REPORT INFORMATION
  Report Type: 
  Country: None (occurrence: None)
  Receive Date: 20040405
  Receipt Date: 20040303
  Transmission Date: 20050107
  Serious: Yes (Hospitalization, Other)
  Sender: FDA-Public Use
  Company Number: PHBS2004JP03110

PATIENT
  Age: 29 Year
  Sex: Male

DRUGS (5)
  1. LAMISIL [Suspect]
     Indication: NAIL TINEA
     Dosage: 125 MG/D
     Route: 048
     Dates: start: 20040220, end: 20040229
  2. DEPAKENE [Interacting]
     Dosage: 600 MG/D
     Route: 048
  3. TEGRETOL [Interacting]
     Dosage: 600 MG/D
     Route: 048
  4. ALEVIATIN [Interacting]
     Dosage: 150 MG/DAY
     Route: 048
  5. ALEVIATIN [Concomitant]
     Dosage: 100 MG
     Route: 041

REACTIONS (5)
  - CONDITION AGGRAVATED [None]
  - DEPRESSED LEVEL OF CONSCIOUSNESS [None]
  - GRAND MAL CONVULSION [None]
  - SOMNOLENCE [None]
  - STATUS EPILEPTICUS [None]
